FAERS Safety Report 19086442 (Version 1)
Quarter: 2021Q2

REPORT INFORMATION
  Report Type: Spontaneous
  Country: US (occurrence: US)
  Receive Date: 20210401
  Receipt Date: 20210401
  Transmission Date: 20210717
  Serious: No
  Sender: FDA-Public Use
  Company Number: None

PATIENT
  Age: 52 Year

DRUGS (1)
  1. REPATHA [Suspect]
     Active Substance: EVOLOCUMAB
     Indication: BLOOD CHOLESTEROL
     Dosage: ?          QUANTITY:1 INJECTION;OTHER ROUTE:INJECTION?
     Dates: start: 20210310

REACTIONS (2)
  - Somnolence [None]
  - Frequent bowel movements [None]

NARRATIVE: CASE EVENT DATE: 20210401
